FAERS Safety Report 8502716-4 (Version None)
Quarter: 2012Q3

REPORT INFORMATION
  Report Type: 
  Country: None (occurrence: None)
  Receive Date: 20120702
  Receipt Date: 20120619
  Transmission Date: 20120928
  Serious: Yes (Other)
  Sender: FDA-Public Use
  Company Number: FK201201746

PATIENT
  Age: 55 Year
  Sex: Female

DRUGS (3)
  1. LEUCOVORIN CALCIUM [Suspect]
     Indication: COLON CANCER STAGE III
  2. FLUOROURACIL [Suspect]
     Indication: COLON CANCER STAGE III
  3. OXALIPLATIN [Suspect]
     Indication: COLON CANCER STAGE III

REACTIONS (3)
  - HAEMORRHAGIC DIATHESIS [None]
  - NEUROTOXICITY [None]
  - THROMBOCYTOPENIA [None]
